FAERS Safety Report 8523865-0 (Version None)
Quarter: 2012Q3

REPORT INFORMATION
  Report Type: 
  Country: None (occurrence: None)
  Receive Date: 20120720
  Receipt Date: 20120713
  Transmission Date: 20120928
  Serious: Yes (Hospitalization)
  Sender: FDA-Public Use
  Company Number: US-JNJFOC-20120605467

PATIENT
  Age: 33 Year
  Sex: Female
  Weight: 40.1 kg

DRUGS (6)
  1. APAP TAB [Suspect]
     Indication: PRODUCT USED FOR UNKNOWN INDICATION
     Route: 048
  2. FENTANYL [Concomitant]
     Route: 062
  3. METOPROLOL SUCCINATE [Concomitant]
  4. APAP TAB [Suspect]
     Route: 048
  5. CLONAZEPAM [Concomitant]
  6. IBUPROFEN [Suspect]
     Indication: PRODUCT USED FOR UNKNOWN INDICATION
     Route: 048

REACTIONS (3)
  - INTENTIONAL SELF-INJURY [None]
  - MULTIPLE DRUG OVERDOSE [None]
  - AGITATION [None]
